FAERS Safety Report 25275123 (Version 1)
Quarter: 2025Q2

REPORT INFORMATION
  Report Type: Report from Study
  Country: CA (occurrence: CA)
  Receive Date: 20250506
  Receipt Date: 20250506
  Transmission Date: 20250717
  Serious: Yes (Hospitalization)
  Sender: ABBVIE
  Company Number: CA-ABBVIE-6266094

PATIENT
  Sex: Female

DRUGS (2)
  1. VYALEV [Suspect]
     Active Substance: FOSCARBIDOPA\FOSLEVODOPA
     Indication: Product used for unknown indication
     Route: 058
     Dates: start: 20241204
  2. CARBIDOPA AND LEVODOPA [Concomitant]
     Active Substance: CARBIDOPA\LEVODOPA
     Indication: Product used for unknown indication
     Dosage: 100/25

REACTIONS (9)
  - Panic attack [Unknown]
  - Asthma [Unknown]
  - Device difficult to use [Unknown]
  - Weight decreased [Unknown]
  - Dermatitis contact [Unknown]
  - Anxiety [Unknown]
  - On and off phenomenon [Unknown]
  - Catheter site mass [Unknown]
  - Catheter site rash [Unknown]
